FAERS Safety Report 9166331 (Version 1)
Quarter: 2013Q1

REPORT INFORMATION
  Report Type: Spontaneous
  Country: GB (occurrence: GB)
  Receive Date: 20130315
  Receipt Date: 20130315
  Transmission Date: 20140127
  Serious: Yes (Other)
  Sender: FDA-Public Use
  Company Number: GB-ABBOTT-13X-167-1062692-00

PATIENT
  Age: 38 Year
  Sex: Female

DRUGS (2)
  1. EPILIM CHRONOSPHERE [Suspect]
     Indication: EPILEPSY
     Route: 048
  2. LANSOPRAZOLE [Concomitant]
     Indication: PRODUCT USED FOR UNKNOWN INDICATION

REACTIONS (3)
  - Medication residue present [Unknown]
  - Convulsion [Unknown]
  - Vomiting [Unknown]
